FAERS Safety Report 9666832 (Version 1)
Quarter: 2013Q4

REPORT INFORMATION
  Report Type: Spontaneous
  Country: US (occurrence: US)
  Receive Date: 20131104
  Receipt Date: 20131104
  Transmission Date: 20140711
  Serious: No
  Sender: FDA-Public Use
  Company Number: US-BIOGENIDEC-2013BI087909

PATIENT
  Age: 63 Year
  Sex: Female
  Weight: 63 kg

DRUGS (5)
  1. TECFIDERA [Suspect]
     Indication: MULTIPLE SCLEROSIS
     Route: 048
  2. ADVIL [Concomitant]
     Route: 048
  3. HYDROCODONE [Concomitant]
  4. HOMATROP [Concomitant]
     Route: 048
  5. IBUPROFEN [Concomitant]
     Route: 048

REACTIONS (5)
  - Urticaria [Not Recovered/Not Resolved]
  - Miliaria [Not Recovered/Not Resolved]
  - Rash [Unknown]
  - Pruritus [Unknown]
  - Flushing [Unknown]
